FAERS Safety Report 5563233-7 (Version None)
Quarter: 2007Q4

REPORT INFORMATION
  Report Type: 
  Country: None (occurrence: None)
  Receive Date: 20071217
  Receipt Date: 20071206
  Transmission Date: 20080405
  Serious: Yes (Other)
  Sender: FDA-Public Use
  Company Number: DE-WYE-G00739107

PATIENT
  Sex: Female

DRUGS (2)
  1. TYGACIL [Suspect]
     Indication: ABDOMINAL INFECTION
     Dosage: UNKNOWN
     Route: 042
     Dates: start: 20070101, end: 20070101
  2. FORTUM [Concomitant]
     Indication: ABDOMINAL INFECTION

REACTIONS (2)
  - DRUG INEFFECTIVE [None]
  - SEPTIC SHOCK [None]
